FAERS Safety Report 12083563 (Version 1)
Quarter: 2016Q1

REPORT INFORMATION
  Report Type: Spontaneous
  Country: US (occurrence: None)
  Receive Date: 20160216
  Receipt Date: 20160216
  Transmission Date: 20160526
  Serious: Yes (Other)
  Sender: FDA-Public Use
  Company Number: None

PATIENT
  Age: 61 Year
  Sex: Female
  Weight: 62.6 kg

DRUGS (23)
  1. POTASSIUM CL [Concomitant]
     Active Substance: POTASSIUM CHLORIDE
  2. CPAP MACHINE [Concomitant]
  3. GLUCOMETER [Concomitant]
  4. TAMIFLU [Suspect]
     Active Substance: OSELTAMIVIR PHOSPHATE
     Indication: INFLUENZA LIKE ILLNESS
     Route: 048
     Dates: start: 20160206, end: 20160210
  5. STOOL SOFTNER [Concomitant]
  6. MIRTAZAPINE. [Concomitant]
     Active Substance: MIRTAZAPINE
  7. TIZANIDINE. [Concomitant]
     Active Substance: TIZANIDINE
  8. LISINOPRIL. [Concomitant]
     Active Substance: LISINOPRIL
  9. NIFEDICAL XL [Concomitant]
     Active Substance: NIFEDIPINE
  10. HUMALOG [Concomitant]
     Active Substance: INSULIN LISPRO
  11. SIMVASTATIN. [Concomitant]
     Active Substance: SIMVASTATIN
  12. TROSPIUM CHLORIDE ER [Concomitant]
     Active Substance: TROSPIUM CHLORIDE
  13. CLONIDINE. [Concomitant]
     Active Substance: CLONIDINE
  14. ASA [Concomitant]
     Active Substance: ASPIRIN
  15. CARVEDILOL. [Concomitant]
     Active Substance: CARVEDILOL
  16. MULTIVITAMIN+ MINERALS [Concomitant]
  17. HYDROCODON [Concomitant]
     Active Substance: HYDROCODONE
  18. TRAZODONE [Concomitant]
     Active Substance: TRAZODONE HYDROCHLORIDE
  19. FUROSEMIDE. [Concomitant]
     Active Substance: FUROSEMIDE
  20. LEVEMIR [Concomitant]
     Active Substance: INSULIN DETEMIR
  21. DONEPIZIL [Concomitant]
  22. HYSINGLA ER [Concomitant]
     Active Substance: HYDROCODONE BITARTRATE
  23. VITAMIN -D [Concomitant]

REACTIONS (2)
  - Pain [None]
  - Skin mass [None]

NARRATIVE: CASE EVENT DATE: 20160211
